FAERS Safety Report 5023428-8 (Version None)
Quarter: 2006Q2

REPORT INFORMATION
  Report Type: 
  Country: None (occurrence: None)
  Receive Date: 20060427
  Receipt Date: 20050908
  Transmission Date: 20061013
  Serious: No
  Sender: FDA-Public Use
  Company Number: 2005-132459-NL

PATIENT
  Sex: Male
  Weight: 80 kg

DRUGS (1)
  1. ZEMURON [Suspect]
     Indication: INTUBATION
     Dosage: 60 MG ONCE INTRAVENOUS (NOS)
     Route: 042
     Dates: start: 20050101

REACTIONS (1)
  - NEUROMUSCULAR BLOCK PROLONGED [None]
